FAERS Safety Report 6067139-9 (Version None)
Quarter: 2009Q1

REPORT INFORMATION
  Report Type: 
  Country: None (occurrence: None)
  Receive Date: 20090203
  Receipt Date: 20090119
  Transmission Date: 20090719
  Serious: Yes (Hospitalization)
  Sender: FDA-Public Use
  Company Number: SPV1-2009-00088

PATIENT
  Age: 18 Year
  Sex: Male
  Weight: 68 kg

DRUGS (2)
  1. LIALDA [Suspect]
     Indication: COLITIS ULCERATIVE
     Dosage: 2.4 G DAILY, ORAL; 2.4 G DAILY, ORAL
     Route: 048
     Dates: start: 20081201, end: 20090115
  2. LIALDA [Suspect]
     Indication: COLITIS ULCERATIVE
     Dosage: 2.4 G DAILY, ORAL; 2.4 G DAILY, ORAL
     Route: 048
     Dates: start: 20090118

REACTIONS (2)
  - DUODENAL ULCER HAEMORRHAGE [None]
  - HAEMATEMESIS [None]
